FAERS Safety Report 9373556 (Version 1)
Quarter: 2013Q2

REPORT INFORMATION
  Report Type: Other
  Country: GB (occurrence: GB)
  Receive Date: 20130627
  Receipt Date: 20130627
  Transmission Date: 20140414
  Serious: Yes (Other)
  Sender: FDA-Public Use
  Company Number: GB-WATSON-2013-11530

PATIENT
  Sex: 0

DRUGS (4)
  1. SERTRALINE HYDROCHLORIDE (UNKNOWN) [Suspect]
     Indication: PANIC ATTACK
     Dosage: 50 MG, UNKNOWN
     Route: 048
     Dates: start: 20121207, end: 20130604
  2. FLECAINIDE [Concomitant]
     Indication: PRODUCT USED FOR UNKNOWN INDICATION
     Dosage: UNK, UNKNOWN
     Route: 065
  3. LANSOPRAZOLE [Concomitant]
     Indication: PRODUCT USED FOR UNKNOWN INDICATION
     Dosage: UNK, UNKNOWN
     Route: 065
  4. SPASMONAL                          /00097002/ [Concomitant]
     Indication: PRODUCT USED FOR UNKNOWN INDICATION
     Dosage: UNK, UNKNOWN
     Route: 065

REACTIONS (6)
  - Penile pain [Not Recovered/Not Resolved]
  - Penile swelling [Not Recovered/Not Resolved]
  - Genital rash [Not Recovered/Not Resolved]
  - Pruritus genital [Not Recovered/Not Resolved]
  - Dysuria [Not Recovered/Not Resolved]
  - Skin disorder [Not Recovered/Not Resolved]
